FAERS Safety Report 17474589 (Version 1)
Quarter: 2020Q1

REPORT INFORMATION
  Report Type: Report from Study
  Country: GB (occurrence: GB)
  Receive Date: 20200228
  Receipt Date: 20200228
  Transmission Date: 20200409
  Serious: Yes (Hospitalization, Other)
  Sender: FDA-Public Use
  Company Number: GB-JNJFOC-20190726479

PATIENT
  Age: 31 Year
  Sex: Female
  Weight: 61.1 kg

DRUGS (6)
  1. GUSELKUMAB [Suspect]
     Active Substance: GUSELKUMAB
     Indication: PSORIASIS
     Dates: start: 20181011
  2. HYDROXYZINE [Concomitant]
     Active Substance: HYDROXYZINE HYDROCHLORIDE
     Dates: start: 20140801
  3. FERROUS SULFATE. [Concomitant]
     Active Substance: FERROUS SULFATE
     Dates: start: 20140801
  4. SALBUTAMOL [Concomitant]
     Active Substance: ALBUTEROL
     Dates: start: 20181030
  5. DICLOFENAC [Concomitant]
     Active Substance: DICLOFENAC
     Dates: start: 20161209
  6. USTEKINUMAB [Suspect]
     Active Substance: USTEKINUMAB
     Indication: PSORIASIS
     Route: 058
     Dates: start: 20140909, end: 20151001

REACTIONS (3)
  - Asthma [Recovered/Resolved]
  - Pneumonia [Recovered/Resolved]
  - Pulmonary embolism [Recovered/Resolved]

NARRATIVE: CASE EVENT DATE: 20181023
